FAERS Safety Report 8005359-4 (Version None)
Quarter: 2011Q4

REPORT INFORMATION
  Report Type: 
  Country: None (occurrence: None)
  Receive Date: 20111123
  Receipt Date: 20110816
  Transmission Date: 20120403
  Serious: No
  Sender: FDA-Public Use
  Company Number: 336083

PATIENT

DRUGS (1)
  1. VICTOZA [Suspect]
     Route: 058

REACTIONS (1)
  - DIARRHOEA [None]
